FAERS Safety Report 5038255-5 (Version None)
Quarter: 2006Q2

REPORT INFORMATION
  Report Type: 
  Country: None (occurrence: None)
  Receive Date: 20060601
  Receipt Date: 20060124
  Transmission Date: 20061013
  Serious: No
  Sender: FDA-Public Use
  Company Number: 2006PV007609

PATIENT
  Age: 54 Year
  Sex: Female
  Weight: 126.1 kg

DRUGS (1)
  1. BYETTA [Suspect]
     Indication: DIABETES MELLITUS NON-INSULIN-DEPENDENT
     Dosage: 5 MCG;BID
     Dates: start: 20051219

REACTIONS (2)
  - RASH PRURITIC [None]
  - URTICARIA [None]
